FAERS Safety Report 6375401-5 (Version None)
Quarter: 2009Q3

REPORT INFORMATION
  Report Type: 
  Country: None (occurrence: None)
  Receive Date: 20090910
  Receipt Date: 20090827
  Transmission Date: 20100115
  Serious: Yes (Hospitalization, Other)
  Sender: FDA-Public Use
  Company Number: ADR18892009

PATIENT
  Age: 76 Year
  Sex: Female

DRUGS (9)
  1. ALENDRONIC ACID (MFR: UNKNOWN) [Suspect]
     Indication: OSTEOPOROSIS PROPHYLAXIS
     Dosage: 70 MG (1/1WEEK) ORAL
     Route: 048
     Dates: end: 20090812
  2. NAPROXEN [Concomitant]
  3. ADCAL-D3 [Concomitant]
  4. AMLODIPINE [Concomitant]
  5. BETAHISTINE [Concomitant]
  6. RANITIDINE [Concomitant]
  7. SIMVASTATIN [Concomitant]
  8. TRAMADOL [Concomitant]
  9. ZOLPIDEM [Concomitant]

REACTIONS (2)
  - GASTRIC ULCER HAEMORRHAGE [None]
  - HAEMATEMESIS [None]
